FAERS Safety Report 5410731-2 (Version None)
Quarter: 2007Q3

REPORT INFORMATION
  Report Type: 
  Country: None (occurrence: None)
  Receive Date: 20070810
  Receipt Date: 20070125
  Transmission Date: 20080115
  Serious: No
  Sender: FDA-Public Use
  Company Number: A0636539A

PATIENT
  Sex: Female

DRUGS (5)
  1. PAXIL CR [Suspect]
     Indication: DEPRESSION
     Dosage: 25MG PER DAY
     Route: 048
     Dates: start: 20061001
  2. PERCOCET [Concomitant]
  3. ACCUPRIL [Concomitant]
  4. TRAZODONE HCL [Concomitant]
  5. AMBIEN [Concomitant]

REACTIONS (6)
  - CONTUSION [None]
  - INCREASED APPETITE [None]
  - INSOMNIA [None]
  - MEMORY IMPAIRMENT [None]
  - PERSONALITY CHANGE [None]
  - WEIGHT INCREASED [None]
